FAERS Safety Report 9842214 (Version 1)
Quarter: 2014Q1

REPORT INFORMATION
  Report Type: Spontaneous
  Country: BR (occurrence: BR)
  Receive Date: 20140124
  Receipt Date: 20140124
  Transmission Date: 20141002
  Serious: Yes (Other)
  Sender: FDA-Public Use
  Company Number: BR-GLAXOSMITHKLINE-A1057908A

PATIENT
  Age: 76 Year
  Sex: Male
  Weight: 70 kg

DRUGS (4)
  1. COMBODART [Suspect]
     Indication: BENIGN PROSTATIC HYPERPLASIA
     Dosage: 1CAP PER DAY
     Route: 048
     Dates: start: 20130715, end: 20140115
  2. ENALAPRIL [Concomitant]
     Dosage: 1TAB PER DAY
     Route: 048
     Dates: start: 2011
  3. RITMONORM [Concomitant]
     Dosage: 1TAB PER DAY
     Route: 048
     Dates: start: 2011
  4. ACETYLSALICYLIC ACID [Concomitant]
     Dosage: 1TAB PER DAY
     Route: 048
     Dates: start: 2011

REACTIONS (7)
  - Inguinal hernia repair [Recovered/Resolved]
  - Abdominal distension [Recovered/Resolved]
  - Ejaculation failure [Not Recovered/Not Resolved]
  - Rhinitis [Not Recovered/Not Resolved]
  - Loss of libido [Not Recovered/Not Resolved]
  - Vomiting [Recovered/Resolved]
  - Nausea [Recovered/Resolved]
